FAERS Safety Report 26140224 (Version 2)
Quarter: 2025Q4

REPORT INFORMATION
  Report Type: Spontaneous
  Country: EU (occurrence: EU)
  Receive Date: 20251210
  Receipt Date: 20251230
  Transmission Date: 20260118
  Serious: Yes (Other)
  Sender: MERCK SHARP & DOHME LLC
  Company Number: None

PATIENT
  Age: 59 Year
  Sex: Female
  Weight: 51 kg

DRUGS (8)
  1. KEYTRUDA [Suspect]
     Active Substance: PEMBROLIZUMAB
     Indication: Invasive breast carcinoma
     Dosage: 200MG IN 100ML OF 0.9% NACL EVERY 3 WEEKS
     Route: 042
     Dates: start: 20250828
  2. HYDROCORTISONE [Concomitant]
     Active Substance: HYDROCORTISONE
     Indication: Chemotherapy side effect prophylaxis
     Dosage: 200MG IN 100ML OF NACL 0.9%
     Route: 042
     Dates: start: 2025
  3. TRIMETON [Concomitant]
     Active Substance: CHLORPHENIRAMINE MALEATE
     Indication: Chemotherapy side effect prophylaxis
     Dosage: 10MG IN 100ML OF NACL 0.9%
     Route: 042
     Dates: start: 2025
  4. ONDANSETRON [Concomitant]
     Active Substance: ONDANSETRON
     Indication: Prophylaxis of nausea and vomiting
     Dosage: 8MG IN 100ML OF 0.9% NACL
     Route: 042
     Dates: start: 2025
  5. CARBOPLATIN [Suspect]
     Active Substance: CARBOPLATIN
     Indication: Invasive breast carcinoma
     Dosage: 1.5MG/AUC IN 250ML OF 5% GLUCOSE SOLUTION EVERY WEEK
     Route: 042
     Dates: start: 20250828
  6. OMEPRAZOLE [Concomitant]
     Active Substance: OMEPRAZOLE
     Indication: Prophylaxis against gastrointestinal ulcer
     Dosage: 40MG IN 100ML OF NACL 0.9%
     Route: 042
     Dates: start: 2025
  7. PACLITAXEL [Concomitant]
     Active Substance: PACLITAXEL
     Indication: Invasive breast carcinoma
     Dosage: 80MG/MG IN 250ML OF NACL 0.9% WEEKLY
     Route: 042
     Dates: start: 20250828
  8. DEXAMETHASONE [Concomitant]
     Active Substance: DEXAMETHASONE
     Indication: Chemotherapy side effect prophylaxis
     Dosage: 20MG IN INFUSION
     Route: 042
     Dates: start: 2025

REACTIONS (4)
  - Neutropenia [Recovering/Resolving]
  - Hypertension [Recovered/Resolved]
  - Gastritis [Recovered/Resolved]
  - Anaemia [Recovered/Resolved]

NARRATIVE: CASE EVENT DATE: 20250903
